FAERS Safety Report 24771647 (Version 1)
Quarter: 2024Q4

REPORT INFORMATION
  Report Type: Spontaneous
  Country: CH (occurrence: CH)
  Receive Date: 20241224
  Receipt Date: 20241224
  Transmission Date: 20250115
  Serious: Yes (Death, Hospitalization, Other)
  Sender: SANDOZ
  Company Number: None

PATIENT
  Age: 78 Year
  Sex: Male
  Weight: 76 kg

DRUGS (14)
  1. AMIODARONE HYDROCHLORIDE [Suspect]
     Active Substance: AMIODARONE HYDROCHLORIDE
     Indication: Product used for unknown indication
     Dosage: UNK
     Route: 065
  2. ALDACTONE [Suspect]
     Active Substance: SPIRONOLACTONE
     Indication: Product used for unknown indication
     Dosage: 25 MG N/A DOSE EVERY 24 HOUR
     Route: 048
  3. MELATONIN [Suspect]
     Active Substance: MELATONIN
     Indication: Product used for unknown indication
     Dosage: 4 MG N/A DOSE EVERY 24 HOUR
     Route: 048
  4. HALDOL [Suspect]
     Active Substance: HALOPERIDOL
     Indication: Delirium
     Dosage: UNK
     Route: 065
     Dates: start: 20241101
  5. LISINOPRIL [Suspect]
     Active Substance: LISINOPRIL
     Indication: Product used for unknown indication
     Dosage: 2.5 MG N/A DOSE EVERY 24 HOUR
     Route: 048
  6. LORAZEPAM [Suspect]
     Active Substance: LORAZEPAM
     Indication: Delirium
     Dosage: UNK
     Route: 065
  7. METOPROLOL [Suspect]
     Active Substance: METOPROLOL
     Indication: Product used for unknown indication
     Dosage: 150 MG N/A DOSE EVERY 1 DAY (METOPROLOL MEPHA ZOK)
     Route: 048
  8. PIPERACILLIN AND TAZOBACTAM [Suspect]
     Active Substance: PIPERACILLIN SODIUM\TAZOBACTAM SODIUM
     Indication: Product used for unknown indication
     Dosage: UNK
     Route: 065
  9. QUETIAPINE [Suspect]
     Active Substance: QUETIAPINE
     Indication: Delirium
     Dosage: UNK
     Route: 065
  10. RISPERDAL [Suspect]
     Active Substance: RISPERIDONE
     Indication: Delirium
     Dosage: UNK
     Route: 065
  11. ELTROXIN LF [Concomitant]
     Indication: Product used for unknown indication
     Dosage: 50 UG N/A DOSE EVERY 24 HOUR
     Route: 048
  12. Ezetimibe organon [Concomitant]
     Indication: Product used for unknown indication
     Dosage: 10 MG N/A DOSE EVERY 24 HOUR
     Route: 048
  13. JARDIANCE [Concomitant]
     Active Substance: EMPAGLIFLOZIN
     Indication: Product used for unknown indication
     Dosage: 10 MG, Q24H
     Route: 048
  14. PRADAXA [Concomitant]
     Active Substance: DABIGATRAN ETEXILATE MESYLATE
     Indication: Product used for unknown indication
     Dosage: 150 MG, Q24H
     Route: 048

REACTIONS (1)
  - Delirium [Fatal]

NARRATIVE: CASE EVENT DATE: 20241101
